FAERS Safety Report 8015409 (Version 2)
Quarter: 2014Q2

REPORT INFORMATION
  Report Type: Spontaneous
  Country: KR (occurrence: KR)
  Receive Date: 20110629
  Receipt Date: 20140609
  Transmission Date: 20141212
  Serious: Yes (Hospitalization)
  Sender: FDA-Public Use
  Company Number: KR-B.I. PHARMACEUTICALS,INC./RIDGEFIELD-2011-DE-03706GD

PATIENT
  Age: 75 Year
  Sex: Female

DRUGS (8)
  1. PRAMIPEXOLE [Suspect]
     Indication: PARKINSON^S DISEASE
     Dosage: 0.375 MG
     Route: 065
  2. PRAMIPEXOLE [Suspect]
     Dosage: 0.75 MG
     Route: 065
  3. PRAMIPEXOLE [Suspect]
     Dosage: 1.125 MG
     Route: 065
  4. AMANTADINE [Suspect]
     Indication: PARKINSON^S DISEASE
     Dosage: 100 MG
     Route: 065
  5. GLIMEPIRIDE [Concomitant]
     Indication: DIABETES MELLITUS
     Dosage: 2 MG
     Route: 065
  6. ALPRAZOLAM [Concomitant]
     Indication: ANXIETY
     Dosage: 0.375 MG
     Route: 065
  7. ASPIRIN [Concomitant]
     Indication: WHITE MATTER LESION
     Dosage: 100 MG
     Route: 065
  8. STALEVO [Concomitant]
     Indication: PARKINSON^S DISEASE
     Dosage: LEVODOPA/CARBIDOPA/ENTACAPONE 150/37.5/600 MG
     Route: 065

REACTIONS (5)
  - Inappropriate antidiuretic hormone secretion [Recovered/Resolved]
  - Asthenia [Recovered/Resolved]
  - Delirium [Recovered/Resolved]
  - Parkinsonism [Recovered/Resolved]
  - Hyponatraemia [Recovered/Resolved]
